FAERS Safety Report 8579768-9 (Version None)
Quarter: 2012Q3

REPORT INFORMATION
  Report Type: 
  Country: None (occurrence: None)
  Receive Date: 20120808
  Receipt Date: 20120806
  Transmission Date: 20120928
  Serious: Yes (Life-Threatening, Hospitalization)
  Sender: FDA-Public Use
  Company Number: DE-ACTELION-A-US2012-69597

PATIENT
  Age: 73 Year
  Sex: Male

DRUGS (3)
  1. SILDENAFIL [Concomitant]
  2. VENTAVIS [Suspect]
     Indication: PULMONARY EMBOLISM
     Dosage: 2 MG, QD
     Route: 055
     Dates: start: 20120723, end: 20120727
  3. WARFARIN SODIUM [Concomitant]

REACTIONS (4)
  - TRANSIENT ISCHAEMIC ATTACK [None]
  - TACHYCARDIA [None]
  - DYSPNOEA [None]
  - BLOOD PRESSURE INCREASED [None]
